FAERS Safety Report 9649558 (Version 1)
Quarter: 2013Q4

REPORT INFORMATION
  Report Type: Spontaneous
  Country: FR (occurrence: FR)
  Receive Date: 20131028
  Receipt Date: 20131028
  Transmission Date: 20140711
  Serious: Yes (Hospitalization)
  Sender: FDA-Public Use
  Company Number: FR-B.I. PHARMACEUTICALS,INC./RIDGEFIELD-2013-FF-02563FF

PATIENT
  Age: 90 Year
  Sex: Female

DRUGS (13)
  1. SIFROL [Suspect]
     Route: 048
     Dates: end: 20130916
  2. PREVISCAN [Suspect]
     Indication: ATRIAL FIBRILLATION
     Route: 048
     Dates: end: 20130916
  3. DOLIPRANE [Suspect]
     Route: 048
     Dates: end: 20130916
  4. LAMALINE [Suspect]
     Route: 048
     Dates: end: 20130916
  5. XANAX [Suspect]
     Route: 048
     Dates: end: 20130916
  6. OXYCONTIN [Suspect]
     Route: 048
     Dates: end: 20130916
  7. LASILIX [Concomitant]
  8. CARDENSIEL [Concomitant]
  9. INEXIUM [Concomitant]
  10. FLECTOR [Concomitant]
  11. ADARTREL [Concomitant]
  12. LANTUS [Concomitant]
  13. NOVORAPID [Concomitant]

REACTIONS (2)
  - Hepatitis [Not Recovered/Not Resolved]
  - Haematoma [Recovered/Resolved]
